FAERS Safety Report 18100431 (Version 1)
Quarter: 2020Q3

REPORT INFORMATION
  Report Type: Spontaneous
  Country: US (occurrence: US)
  Receive Date: 20200731
  Receipt Date: 20200731
  Transmission Date: 20201105
  Serious: Yes (Hospitalization)
  Sender: FDA-Public Use
  Company Number: US-CELGENEUS-USA-20200706453

PATIENT
  Age: 70 Year
  Sex: Female
  Weight: 66.6 kg

DRUGS (39)
  1. GEMCITABINE. [Suspect]
     Active Substance: GEMCITABINE
     Route: 041
     Dates: start: 20190702, end: 20190702
  2. OMEPRAZOLE. [Concomitant]
     Active Substance: OMEPRAZOLE
     Indication: GASTROOESOPHAGEAL REFLUX DISEASE
     Dosage: 20 MILLIGRAM
     Route: 048
     Dates: start: 20190211
  3. ABRAXANE [Suspect]
     Active Substance: PACLITAXEL
     Indication: PANCREATIC CARCINOMA METASTATIC
     Route: 042
     Dates: start: 20190312, end: 20190312
  4. ABRAXANE [Suspect]
     Active Substance: PACLITAXEL
     Route: 042
     Dates: start: 20190319, end: 20190319
  5. ABRAXANE [Suspect]
     Active Substance: PACLITAXEL
     Route: 042
     Dates: start: 20190827, end: 20190827
  6. OLECLUMAB. [Suspect]
     Active Substance: OLECLUMAB
     Route: 042
     Dates: start: 20190423, end: 20190423
  7. GEMCITABINE. [Suspect]
     Active Substance: GEMCITABINE
     Route: 041
     Dates: start: 20190319, end: 20190319
  8. ACETAMINOPHEN. [Concomitant]
     Active Substance: ACETAMINOPHEN
     Indication: BACK PAIN
     Route: 048
     Dates: start: 20190211
  9. ABRAXANE [Suspect]
     Active Substance: PACLITAXEL
     Route: 042
     Dates: start: 20190423, end: 20190423
  10. OLECLUMAB. [Suspect]
     Active Substance: OLECLUMAB
     Indication: PANCREATIC CARCINOMA METASTATIC
     Route: 042
     Dates: start: 20190312, end: 20190312
  11. OLECLUMAB. [Suspect]
     Active Substance: OLECLUMAB
     Route: 042
     Dates: start: 20190827, end: 20190827
  12. GEMCITABINE. [Suspect]
     Active Substance: GEMCITABINE
     Indication: PANCREATIC CARCINOMA METASTATIC
     Route: 041
     Dates: start: 20190312, end: 20190312
  13. GEMCITABINE. [Suspect]
     Active Substance: GEMCITABINE
     Route: 041
     Dates: start: 20190730, end: 20190730
  14. ONDANSETRON [Concomitant]
     Active Substance: ONDANSETRON
     Indication: NAUSEA
     Route: 048
     Dates: start: 20190409
  15. ABRAXANE [Suspect]
     Active Substance: PACLITAXEL
     Route: 042
     Dates: start: 20190409, end: 20190409
  16. ABRAXANE [Suspect]
     Active Substance: PACLITAXEL
     Route: 042
     Dates: start: 20190521, end: 20190521
  17. ABRAXANE [Suspect]
     Active Substance: PACLITAXEL
     Route: 042
     Dates: start: 20190618, end: 20190618
  18. OLECLUMAB. [Suspect]
     Active Substance: OLECLUMAB
     Route: 042
     Dates: start: 20190507, end: 20190507
  19. GEMCITABINE. [Suspect]
     Active Substance: GEMCITABINE
     Route: 041
     Dates: start: 20190507, end: 20190507
  20. GEMCITABINE. [Suspect]
     Active Substance: GEMCITABINE
     Route: 041
     Dates: start: 20190618, end: 20190618
  21. ABRAXANE [Suspect]
     Active Substance: PACLITAXEL
     Route: 042
     Dates: start: 20190507, end: 20190507
  22. ABRAXANE [Suspect]
     Active Substance: PACLITAXEL
     Route: 042
     Dates: start: 20190702, end: 20190702
  23. ABRAXANE [Suspect]
     Active Substance: PACLITAXEL
     Route: 042
     Dates: start: 20190716, end: 20190716
  24. GEMCITABINE. [Suspect]
     Active Substance: GEMCITABINE
     Route: 041
     Dates: start: 20190716, end: 20190716
  25. POLYETHYLENE GLYCOL 3350. [Concomitant]
     Active Substance: POLYETHYLENE GLYCOL 3350
     Indication: CONSTIPATION
     Dosage: 17 GRAM
     Route: 048
     Dates: start: 2019
  26. VITAMIN E [Concomitant]
     Active Substance: .ALPHA.-TOCOPHEROL
     Indication: NUTRITIONAL SUPPLEMENTATION
     Dosage: 1000 IU (INTERNATIONAL UNIT)
     Route: 048
     Dates: start: 20190423
  27. CALCIUM? VITAMIN D [Concomitant]
     Indication: HYPOCALCAEMIA
     Dosage: 10
     Route: 048
     Dates: start: 20190423
  28. OLECLUMAB. [Suspect]
     Active Substance: OLECLUMAB
     Route: 042
     Dates: start: 20190702, end: 20190702
  29. GEMCITABINE. [Suspect]
     Active Substance: GEMCITABINE
     Route: 041
     Dates: start: 20190423, end: 20190423
  30. GEMCITABINE. [Suspect]
     Active Substance: GEMCITABINE
     Route: 041
     Dates: start: 20190521, end: 20190521
  31. ACETAMINOPHEN. [Concomitant]
     Active Substance: ACETAMINOPHEN
     Indication: CHEST PAIN
  32. OLECLUMAB. [Suspect]
     Active Substance: OLECLUMAB
     Route: 042
     Dates: start: 20190326, end: 20190326
  33. OLECLUMAB. [Suspect]
     Active Substance: OLECLUMAB
     Route: 042
     Dates: start: 20190409, end: 20190409
  34. OLECLUMAB. [Suspect]
     Active Substance: OLECLUMAB
     Route: 042
     Dates: start: 20190604, end: 20190604
  35. OLECLUMAB. [Suspect]
     Active Substance: OLECLUMAB
     Route: 042
     Dates: start: 20190730, end: 20190730
  36. GEMCITABINE. [Suspect]
     Active Substance: GEMCITABINE
     Route: 041
     Dates: start: 20190409, end: 20190409
  37. GEMCITABINE. [Suspect]
     Active Substance: GEMCITABINE
     Route: 041
     Dates: start: 20190604, end: 20190604
  38. GEMCITABINE. [Suspect]
     Active Substance: GEMCITABINE
     Route: 041
     Dates: start: 20190827, end: 20190827
  39. VITAMIN D3 [Concomitant]
     Active Substance: CHOLECALCIFEROL
     Indication: NUTRITIONAL SUPPLEMENTATION
     Dosage: 2000 IU (INTERNATIONAL UNIT)
     Route: 048
     Dates: start: 20190501

REACTIONS (1)
  - Small intestinal obstruction [Recovered/Resolved]

NARRATIVE: CASE EVENT DATE: 20190924
